FAERS Safety Report 21194713 (Version 1)
Quarter: 2022Q3

REPORT INFORMATION
  Report Type: Spontaneous
  Country: IN (occurrence: IN)
  Receive Date: 20220810
  Receipt Date: 20220810
  Transmission Date: 20221027
  Serious: Yes (Other)
  Sender: FDA-Public Use
  Company Number: IN-MYLANLABS-2022M1084348

PATIENT
  Age: 5 Year
  Sex: Male

DRUGS (6)
  1. METHYLPREDNISOLONE [Suspect]
     Active Substance: METHYLPREDNISOLONE
     Indication: Taeniasis
     Dosage: 30 MILLIGRAM/KILOGRAM
     Route: 042
  2. METHYLPREDNISOLONE [Suspect]
     Active Substance: METHYLPREDNISOLONE
     Indication: Encephalitis
  3. METHOTREXATE [Suspect]
     Active Substance: METHOTREXATE
     Indication: Taeniasis
     Dosage: 2.5 MILLIGRAM, QW
     Route: 048
  4. METHOTREXATE [Suspect]
     Active Substance: METHOTREXATE
     Indication: Encephalitis
  5. PREDNISOLONE [Suspect]
     Active Substance: PREDNISOLONE
     Indication: Taeniasis
     Dosage: UNK
     Route: 048
  6. PREDNISOLONE [Suspect]
     Active Substance: PREDNISOLONE
     Indication: Encephalitis

REACTIONS (6)
  - Drug ineffective for unapproved indication [Unknown]
  - Cushingoid [Unknown]
  - Hypertension [Unknown]
  - Acarodermatitis [Unknown]
  - Fungal infection [Unknown]
  - Off label use [Unknown]
